FAERS Safety Report 24095825 (Version 1)
Quarter: 2024Q3

REPORT INFORMATION
  Report Type: Spontaneous
  Country: GB (occurrence: GB)
  Receive Date: 20240716
  Receipt Date: 20240716
  Transmission Date: 20241016
  Serious: Yes (Congenital Anomaly)
  Sender: TORRENT
  Company Number: None

PATIENT
  Age: 21 Year
  Sex: Female

DRUGS (2)
  1. TOPIRAMATE [Suspect]
     Active Substance: TOPIRAMATE
     Indication: Epilepsy
     Dosage: 250MG BD
     Route: 065
     Dates: start: 20220622
  2. BRIVARACETAM [Concomitant]
     Active Substance: BRIVARACETAM
     Indication: Epilepsy
     Dosage: UNKNOWN
     Route: 065
     Dates: start: 20240521

REACTIONS (2)
  - Maternal exposure during pregnancy [Unknown]
  - Exposure to toxic agent [Not Recovered/Not Resolved]

NARRATIVE: CASE EVENT DATE: 20240107
